FAERS Safety Report 8342039-X (Version None)
Quarter: 2012Q2

REPORT INFORMATION
  Report Type: 
  Country: None (occurrence: None)
  Receive Date: 20120507
  Receipt Date: 20120501
  Transmission Date: 20120825
  Serious: Yes (Hospitalization, Other)
  Sender: FDA-Public Use
  Company Number: NL-PFIZER INC-2012081126

PATIENT
  Age: 44 Year
  Sex: Female
  Weight: 62 kg

DRUGS (3)
  1. OXAZEPAM [Concomitant]
     Dosage: 10 MG, AS NEEDED
  2. FLUTICASONE PROPIONATE/SALMETEROL [Concomitant]
     Dosage: 1 DF, 2X/DAY
     Dates: start: 20100903
  3. VARENICLINE TARTRATE [Suspect]
     Indication: SMOKING CESSATION THERAPY
     Dosage: 1 DF, 1X/DAY
     Dates: start: 20111213, end: 20120103

REACTIONS (2)
  - TENDON RUPTURE [None]
  - MUSCLE RUPTURE [None]
